FAERS Safety Report 8279459-8 (Version None)
Quarter: 2012Q2

REPORT INFORMATION
  Report Type: 
  Country: None (occurrence: None)
  Receive Date: 20120412
  Receipt Date: 20110907
  Transmission Date: 20120825
  Serious: No
  Sender: FDA-Public Use
  Company Number: US-ASTRAZENECA-2011SE14961

PATIENT
  Age: 83 Year
  Sex: Female

DRUGS (2)
  1. UNSPECIFIED [Concomitant]
  2. NEXIUM [Suspect]
     Route: 048

REACTIONS (7)
  - MEMORY IMPAIRMENT [None]
  - GASTRIC DISORDER [None]
  - GASTRIC ULCER [None]
  - HYPOVITAMINOSIS [None]
  - GASTRIC POLYPS [None]
  - KIDNEY INFECTION [None]
  - MALAISE [None]
